FAERS Safety Report 6647459-7 (Version None)
Quarter: 2010Q1

REPORT INFORMATION
  Report Type: 
  Country: None (occurrence: None)
  Receive Date: 20100323
  Receipt Date: 20100323
  Transmission Date: 20100710
  Serious: Yes (Disabling)
  Sender: FDA-Public Use
  Company Number: None

PATIENT
  Age: 98 Year
  Sex: Female
  Weight: 87.5442 kg

DRUGS (1)
  1. ZOCOR [Suspect]
     Indication: BLOOD CHOLESTEROL INCREASED
     Dosage: 40 MG ONE TABLET DAILY PO
     Route: 048
     Dates: start: 20100107, end: 20100310

REACTIONS (3)
  - ASTHENIA [None]
  - GAIT DISTURBANCE [None]
  - RHABDOMYOLYSIS [None]
